FAERS Safety Report 16476104 (Version 1)
Quarter: 2019Q2

REPORT INFORMATION
  Report Type: Spontaneous
  Country: AR (occurrence: AR)
  Receive Date: 20190625
  Receipt Date: 20190625
  Transmission Date: 20190711
  Serious: Yes (Other)
  Sender: FDA-Public Use
  Company Number: AR-AMGEN-ARGSP2019101306

PATIENT
  Age: 53 Year
  Sex: Female

DRUGS (1)
  1. ENBREL [Suspect]
     Active Substance: ETANERCEPT
     Indication: PSORIASIS
     Dosage: 50 MILLIGRAM, QWK
     Route: 065
     Dates: start: 20091012, end: 20190603

REACTIONS (5)
  - Upper limb fracture [Recovering/Resolving]
  - Lower limb fracture [Recovering/Resolving]
  - Mobility decreased [Recovering/Resolving]
  - Sensitivity to weather change [Recovering/Resolving]
  - Product dose omission [Recovering/Resolving]

NARRATIVE: CASE EVENT DATE: 2011
